FAERS Safety Report 7967090-0 (Version None)
Quarter: 2011Q4

REPORT INFORMATION
  Report Type: 
  Country: None (occurrence: None)
  Receive Date: 20111209
  Receipt Date: 20111207
  Transmission Date: 20120403
  Serious: Yes (Hospitalization)
  Sender: FDA-Public Use
  Company Number: US-PFIZER INC-2011230159

PATIENT
  Sex: Female
  Weight: 95 kg

DRUGS (12)
  1. PROPYLTHIOURACIL [Concomitant]
     Dosage: UNK
     Route: 048
     Dates: start: 20110101
  2. NITROGLYCERIN [Concomitant]
     Dosage: UNK
     Route: 060
     Dates: start: 20060101
  3. RAMIPRIL [Concomitant]
     Indication: HYPERTENSION
     Dosage: UNK
     Route: 048
     Dates: start: 20091119
  4. FUROSEMIDE [Concomitant]
     Indication: HYPERTENSION
     Dosage: UNK
     Route: 048
     Dates: start: 20100311
  5. EPLERENONE [Suspect]
     Indication: CARDIAC FAILURE CHRONIC
     Dosage: 50 MG, 1X/DAY, INTERVAL: DAILY
     Route: 048
     Dates: start: 20101012
  6. DIGOXIN [Concomitant]
     Dosage: UNK
     Route: 048
     Dates: start: 20100311
  7. CRESTOR [Concomitant]
     Dosage: UNK
     Route: 048
     Dates: start: 20100504
  8. METHIMAZOLE [Concomitant]
     Dosage: UNK
     Route: 048
     Dates: start: 20110101
  9. AMITRIPTYLINE [Concomitant]
     Dosage: UNK
     Route: 048
     Dates: start: 20100311
  10. VENTOLIN HFA [Concomitant]
     Dosage: UNK
     Route: 055
     Dates: start: 20101012
  11. METOPROLOL SUCCINATE [Concomitant]
     Indication: HYPERTENSION
     Dosage: UNK
     Route: 048
     Dates: start: 20060101
  12. NITRGLYCERIN TRANSDERMAL SYSTEM [Concomitant]
     Indication: ANGINA PECTORIS
     Dosage: UNK
     Route: 062
     Dates: start: 20081001

REACTIONS (1)
  - TOXIC NODULAR GOITRE [None]
